FAERS Safety Report 7283128-0 (Version None)
Quarter: 2011Q1

REPORT INFORMATION
  Report Type: 
  Country: None (occurrence: None)
  Receive Date: 20110209
  Receipt Date: 20101105
  Transmission Date: 20110831
  Serious: No
  Sender: FDA-Public Use
  Company Number: A0891436A

PATIENT
  Age: 33 Year
  Sex: Female

DRUGS (1)
  1. PAXIL CR [Suspect]
     Dosage: 25MG PER DAY
     Route: 065
     Dates: start: 20080101

REACTIONS (1)
  - WITHDRAWAL SYNDROME [None]
